FAERS Safety Report 20202599 (Version 3)
Quarter: 2025Q1

REPORT INFORMATION
  Report Type: Spontaneous
  Country: US (occurrence: US)
  Receive Date: 20211218
  Receipt Date: 20250313
  Transmission Date: 20250409
  Serious: No
  Sender: SANOFI AVENTIS
  Company Number: US-SA-SAC20211210000674

PATIENT
  Age: 48 Year
  Sex: Male

DRUGS (4)
  1. ELOCTATE [Suspect]
     Active Substance: EFMOROCTOCOG ALFA
  2. ELOCTATE [Suspect]
     Active Substance: EFMOROCTOCOG ALFA
  3. ELOCTATE [Suspect]
     Active Substance: EFMOROCTOCOG ALFA
  4. ELOCTATE [Suspect]
     Active Substance: EFMOROCTOCOG ALFA

REACTIONS (5)
  - Swelling [Unknown]
  - Ankle arthroplasty [Unknown]
  - Dizziness [Unknown]
  - Hyperhidrosis [Unknown]
  - Flushing [Unknown]

NARRATIVE: CASE EVENT DATE: 20250307
